FAERS Safety Report 23798442 (Version 1)
Quarter: 2024Q2

REPORT INFORMATION
  Report Type: Spontaneous
  Country: US (occurrence: US)
  Receive Date: 20240430
  Receipt Date: 20240430
  Transmission Date: 20240716
  Serious: Yes (Other)
  Sender: FDA-Public Use
  Company Number: US-PFIZER INC-202400096139

PATIENT
  Age: 30 Year
  Sex: Male

DRUGS (1)
  1. XELJANZ [Suspect]
     Active Substance: TOFACITINIB CITRATE
     Indication: Colitis ulcerative
     Dosage: 5 MG, 2X/DAY
     Dates: end: 202201

REACTIONS (6)
  - Gastritis erosive [Unknown]
  - Night sweats [Unknown]
  - Hiatus hernia [Unknown]
  - Pyrexia [Unknown]
  - Chills [Unknown]
  - Duodenitis [Unknown]
